FAERS Safety Report 6554230-3 (Version None)
Quarter: 2010Q1

REPORT INFORMATION
  Report Type: 
  Country: None (occurrence: None)
  Receive Date: 20100125
  Receipt Date: 20100125
  Transmission Date: 20100710
  Serious: Yes (Other)
  Sender: FDA-Public Use
  Company Number: None

PATIENT
  Age: 59 Year
  Sex: Male
  Weight: 79.3795 kg

DRUGS (1)
  1. TESTIM [Suspect]
     Indication: BLOOD TESTOSTERONE DECREASED
     Dosage: ONE TUBEFUL ONCE DAILY TOP
     Route: 061
     Dates: start: 20091124, end: 20091125

REACTIONS (4)
  - POSTNASAL DRIP [None]
  - PRODUCT ODOUR ABNORMAL [None]
  - RHINORRHOEA [None]
  - VASOMOTOR RHINITIS [None]
